FAERS Safety Report 5473128-5 (Version None)
Quarter: 2007Q4

REPORT INFORMATION
  Report Type: 
  Country: None (occurrence: None)
  Receive Date: 20071001
  Receipt Date: 20070924
  Transmission Date: 20080405
  Serious: Yes (Other)
  Sender: FDA-Public Use
  Company Number: B0489196A

PATIENT
  Sex: Male

DRUGS (2)
  1. NIQUITIN CQ GUM 2MG [Suspect]
     Dosage: 12GUM PER DAY
     Route: 002
  2. NICOTINE PATCHES [Suspect]
     Route: 062

REACTIONS (4)
  - DEPENDENCE [None]
  - OBSESSIVE THOUGHTS [None]
  - PAIN [None]
  - THROAT IRRITATION [None]
